FAERS Safety Report 22159939 (Version 2)
Quarter: 2023Q2

REPORT INFORMATION
  Report Type: Spontaneous
  Country: US (occurrence: US)
  Receive Date: 20230331
  Receipt Date: 20230522
  Transmission Date: 20230721
  Serious: Yes (Other)
  Sender: FDA-Public Use
  Company Number: US-BRISTOL-MYERS SQUIBB COMPANY-2023-039617

PATIENT
  Age: 74 Year
  Sex: Male

DRUGS (2)
  1. POMALYST [Suspect]
     Active Substance: POMALIDOMIDE
     Indication: Plasma cell myeloma
     Dosage: 1 CAPSULE PO QD FOR 21 DAYS ON THEN 7 DAYS OFF
     Route: 048
     Dates: start: 20210805
  2. POMALYST [Suspect]
     Active Substance: POMALIDOMIDE
     Dates: start: 202105

REACTIONS (1)
  - Implantation complication [Recovering/Resolving]
